FAERS Safety Report 6850664-8 (Version None)
Quarter: 2010Q3

REPORT INFORMATION
  Report Type: 
  Country: None (occurrence: None)
  Receive Date: 20100716
  Receipt Date: 20071018
  Transmission Date: 20110219
  Serious: No
  Sender: FDA-Public Use
  Company Number: US-PFIZER INC-2007089361

PATIENT
  Sex: Male
  Weight: 84 kg

DRUGS (6)
  1. CHANTIX [Suspect]
     Indication: SMOKING CESSATION THERAPY
     Dates: start: 20070519, end: 20070501
  2. ZETIA [Concomitant]
  3. PAXIL [Concomitant]
  4. TOPROL-XL [Concomitant]
  5. ALTACE [Concomitant]
     Indication: BLOOD PRESSURE ABNORMAL
  6. LIPITOR [Concomitant]

REACTIONS (1)
  - NAUSEA [None]
